FAERS Safety Report 10028485 (Version 1)
Quarter: 2014Q1

REPORT INFORMATION
  Report Type: Spontaneous
  Country: FR (occurrence: FR)
  Receive Date: 20140321
  Receipt Date: 20140321
  Transmission Date: 20141002
  Serious: Yes (Death)
  Sender: FDA-Public Use
  Company Number: FR-BRISTOL-MYERS SQUIBB COMPANY-20500575

PATIENT
  Age: 29 Year
  Sex: Female

DRUGS (4)
  1. ABILIFY INJECTION 7.5 MG/ML [Suspect]
     Indication: SCHIZOPHRENIA
     Dosage: INJECTABLE SOLUTION?1 DF : 7.5MG/ML
     Route: 030
     Dates: start: 2014, end: 2014
  2. TERCIAN [Suspect]
     Indication: SCHIZOPHRENIA
     Dates: start: 2014, end: 2014
  3. RISPERDAL [Concomitant]
     Indication: SCHIZOPHRENIA
     Route: 048
  4. ABILIFY [Concomitant]
     Indication: SCHIZOPHRENIA
     Route: 048

REACTIONS (1)
  - Sudden death [Fatal]
